FAERS Safety Report 6388881-6 (Version None)
Quarter: 2009Q4

REPORT INFORMATION
  Report Type: 
  Country: None (occurrence: None)
  Receive Date: 20091001
  Receipt Date: 20090917
  Transmission Date: 20100525
  Serious: Yes (Hospitalization)
  Sender: FDA-Public Use
  Company Number: 8051199

PATIENT
  Age: 7 Year
  Sex: Female
  Weight: 18 kg

DRUGS (3)
  1. EQUASYM [Suspect]
     Dosage: 20 MG 6/D PO
     Route: 048
  2. DIPIPERON [Suspect]
     Dosage: 50 ML /D PO
     Route: 048
  3. MEDIKINET [Suspect]

REACTIONS (1)
  - ACCIDENTAL EXPOSURE [None]
